FAERS Safety Report 7654478-0 (Version None)
Quarter: 2011Q3

REPORT INFORMATION
  Report Type: 
  Country: None (occurrence: None)
  Receive Date: 20110803
  Receipt Date: 20110729
  Transmission Date: 20111222
  Serious: Yes (Life-Threatening, Hospitalization)
  Sender: FDA-Public Use
  Company Number: DE-ABBOTT-11P-062-0841860-00

PATIENT
  Age: 64 Year
  Sex: Male
  Weight: 77 kg

DRUGS (18)
  1. INSULIN ISOPHAN [Concomitant]
     Indication: PRODUCT USED FOR UNKNOWN INDICATION
     Dosage: 100 IU/ML, AT NIGHT
     Dates: start: 20100514
  2. RAMIPRIL [Concomitant]
     Route: 048
     Dates: start: 20110420
  3. SIMVASTATIN [Concomitant]
     Indication: PRODUCT USED FOR UNKNOWN INDICATION
     Route: 048
     Dates: start: 20110309
  4. ARANESP [Concomitant]
     Route: 048
     Dates: start: 20110301
  5. INSULIN NORMAL [Concomitant]
     Indication: PRODUCT USED FOR UNKNOWN INDICATION
     Dosage: 100 IU/ML, TID
     Route: 058
     Dates: start: 20100514
  6. ERGOCALCIFEROL [Concomitant]
     Indication: PRODUCT USED FOR UNKNOWN INDICATION
     Dosage: 0.25 MCG THRICE PER WEEK
     Route: 048
  7. RAMIPRIL [Concomitant]
     Indication: PRODUCT USED FOR UNKNOWN INDICATION
     Dosage: 5/5 MG BID
     Route: 048
     Dates: start: 20100918
  8. NEORECORMON [Concomitant]
     Indication: PRODUCT USED FOR UNKNOWN INDICATION
     Route: 058
     Dates: start: 20110420
  9. LOSARTAN COMP 50/12.5 [Concomitant]
     Indication: PRODUCT USED FOR UNKNOWN INDICATION
     Route: 048
     Dates: start: 20100918
  10. PREDNISOLON BOOST THERAPY [Concomitant]
     Indication: PRODUCT USED FOR UNKNOWN INDICATION
     Dosage: FROM 20MG TO 10MG
     Route: 048
     Dates: start: 20110126
  11. ARANESP [Concomitant]
     Indication: PRODUCT USED FOR UNKNOWN INDICATION
     Route: 058
     Dates: start: 20110301, end: 20110420
  12. INSUMAN [Concomitant]
     Indication: PRODUCT USED FOR UNKNOWN INDICATION
     Route: 058
     Dates: start: 20110223
  13. ZEMPLAR [Suspect]
     Dosage: THRICE PER WEEK
     Route: 048
     Dates: start: 20110108
  14. INSUMAN RAPID [Concomitant]
     Indication: PRODUCT USED FOR UNKNOWN INDICATION
     Dates: start: 20110226
  15. DEKRISTOL 20000IU [Concomitant]
     Indication: PRODUCT USED FOR UNKNOWN INDICATION
     Dosage: OPW
     Route: 048
     Dates: start: 20100918
  16. LOSARTAN POTASSIUM [Concomitant]
     Indication: PRODUCT USED FOR UNKNOWN INDICATION
     Dosage: 50MG/12.5MG
     Route: 048
  17. ZEMPLAR [Suspect]
     Indication: HYPERPARATHYROIDISM SECONDARY
     Dosage: TWICE PER WEEK 1MCG
     Route: 048
     Dates: start: 20100918, end: 20110108
  18. NATRIUMHYDOGENCARBONAT 840 [Concomitant]
     Indication: PRODUCT USED FOR UNKNOWN INDICATION
     Route: 048
     Dates: start: 20100914

REACTIONS (6)
  - HYPOPROTEINAEMIA [None]
  - GASTROINTESTINAL HAEMORRHAGE [None]
  - GENERALISED OEDEMA [None]
  - EPISTAXIS [None]
  - HAEMORRHAGE [None]
  - ANAEMIA [None]
